FAERS Safety Report 15773142 (Version 1)
Quarter: 2018Q4

REPORT INFORMATION
  Report Type: Spontaneous
  Country: TR (occurrence: TR)
  Receive Date: 20181228
  Receipt Date: 20181228
  Transmission Date: 20190205
  Serious: Yes (Life-Threatening, Other)
  Sender: FDA-Public Use
  Company Number: TR-FRESENIUS KABI-FK201813280

PATIENT
  Age: 24 Year
  Sex: Female

DRUGS (4)
  1. DIGOXIN. [Concomitant]
     Active Substance: DIGOXIN
     Indication: TACHYARRHYTHMIA
     Dosage: UNKNOWN
     Route: 042
  2. METOPROLOL. [Concomitant]
     Active Substance: METOPROLOL
     Indication: TACHYARRHYTHMIA
     Dosage: UNKNOWN
     Route: 042
  3. AMIODARONE HCL (MANUFACTURER UNKNOWN) [Suspect]
     Active Substance: AMIODARONE HYDROCHLORIDE
     Indication: TACHYARRHYTHMIA
     Dosage: UNKNOWN
     Route: 042
  4. ADENOSINE. [Concomitant]
     Active Substance: ADENOSINE
     Indication: TACHYARRHYTHMIA
     Dosage: UNKNOWN
     Route: 042

REACTIONS (4)
  - Product use in unapproved indication [Recovered/Resolved]
  - Condition aggravated [Recovered/Resolved]
  - Maternal exposure during pregnancy [Recovered/Resolved]
  - Haemodynamic instability [Recovered/Resolved]
